FAERS Safety Report 12971055 (Version 2)
Quarter: 2016Q4

REPORT INFORMATION
  Report Type: Spontaneous
  Country: US (occurrence: US)
  Receive Date: 20161123
  Receipt Date: 20161128
  Transmission Date: 20170207
  Serious: No
  Sender: FDA-Public Use
  Company Number: US-JAZZ-2016-US-018837

PATIENT
  Sex: Female

DRUGS (69)
  1. L THEANINE [Concomitant]
  2. GLUTATHIONE [Concomitant]
     Active Substance: GLUTATHIONE
  3. L-METHIONINE [Concomitant]
  4. PROGESTERONE. [Concomitant]
     Active Substance: PROGESTERONE
  5. QUERCETIN DIHYDRATE [Concomitant]
  6. LYRICA [Concomitant]
     Active Substance: PREGABALIN
  7. OLIVE LEAF EXTRACT [Concomitant]
  8. CALCIUM CARBONATE. [Concomitant]
     Active Substance: CALCIUM CARBONATE
  9. TAURINE [Concomitant]
     Active Substance: TAURINE
  10. VITAMIN B6 [Concomitant]
     Active Substance: PYRIDOXINE HYDROCHLORIDE
  11. GASTROCROM [Concomitant]
     Active Substance: CROMOLYN SODIUM
  12. TURMERIC                           /01079601/ [Concomitant]
     Active Substance: TURMERIC
  13. CETIRIZINE HCL [Concomitant]
     Active Substance: CETIRIZINE HYDROCHLORIDE
  14. CHLORZOXAZONE. [Concomitant]
     Active Substance: CHLORZOXAZONE
  15. CIMETIDINE [Concomitant]
     Active Substance: CIMETIDINE
  16. MIGRANAL [Concomitant]
     Active Substance: DIHYDROERGOTAMINE MESYLATE
  17. FLONASE                            /00908302/ [Concomitant]
     Active Substance: MOMETASONE FUROATE
  18. PROBIOTIC                          /06395501/ [Concomitant]
     Active Substance: BIFIDOBACTERIUM ANIMALIS SUBSP. LACTIS
  19. AMITRIPTYLINE HCL [Concomitant]
     Active Substance: AMITRIPTYLINE
  20. DIHYDROERGOTAMINE [Concomitant]
     Active Substance: DIHYDROERGOTAMINE
  21. EXCEDRIN MIGRAINE [Concomitant]
     Active Substance: ACETAMINOPHEN\ASPIRIN\CAFFEINE
  22. XYREM [Suspect]
     Active Substance: SODIUM OXYBATE
     Dosage: 3.5 G, BID
     Route: 048
     Dates: start: 201105
  23. COENZYME Q10 [Concomitant]
     Active Substance: UBIDECARENONE
  24. FEXOFENADINE HCL [Concomitant]
     Active Substance: FEXOFENADINE HYDROCHLORIDE
  25. RHODIOLA                           /02220301/ [Concomitant]
  26. SLIPPERY ELM [Concomitant]
     Active Substance: ELM
  27. FISH OIL [Concomitant]
     Active Substance: FISH OIL
  28. HYDROCORTISONE. [Concomitant]
     Active Substance: HYDROCORTISONE
  29. MAGNEBIND [Concomitant]
  30. THEANINE [Concomitant]
     Active Substance: THEANINE
  31. DIGESTIVE ENZYME [Concomitant]
     Active Substance: UNSPECIFIED INGREDIENT
  32. CROMOLYN SODIUM. [Concomitant]
     Active Substance: CROMOLYN SODIUM
  33. EPIPEN JR [Concomitant]
     Active Substance: EPINEPHRINE
  34. 5-HTP                              /00439301/ [Concomitant]
  35. ALPHA LIPOIC ACID [Concomitant]
     Active Substance: .ALPHA.-LIPOIC ACID
  36. AZITHROMYCIN ANHYDROUS. [Concomitant]
     Active Substance: AZITHROMYCIN ANHYDROUS
  37. MINOCYCLINE [Concomitant]
     Active Substance: MINOCYCLINE\MINOCYCLINE HYDROCHLORIDE
  38. ACAI                               /06686501/ [Concomitant]
  39. ONDANSETRON [Concomitant]
     Active Substance: ONDANSETRON
  40. VITAMIN B12 [Concomitant]
     Active Substance: CYANOCOBALAMIN
  41. VERAPAMIL [Concomitant]
     Active Substance: VERAPAMIL HYDROCHLORIDE
  42. NALTREXONE [Concomitant]
     Active Substance: NALTREXONE
  43. GLUCOSAMINE [Concomitant]
     Active Substance: GLUCOSAMINE
  44. METHYLCOBALAMIN. [Concomitant]
     Active Substance: METHYLCOBALAMIN
  45. VIVELLE-DOT [Concomitant]
     Active Substance: ESTRADIOL
  46. XYREM [Suspect]
     Active Substance: SODIUM OXYBATE
     Indication: CATAPLEXY
     Dosage: DOSE ADJUSTMENTS
     Route: 048
     Dates: start: 201008, end: 201105
  47. BOSWELLIA SERRATA [Concomitant]
  48. VITAMIN D3 [Concomitant]
     Active Substance: CHOLECALCIFEROL
  49. YUCCA ROOT [Concomitant]
  50. ALLERGAN [Concomitant]
     Active Substance: PAPAIN
  51. CURCUMIN [Concomitant]
     Active Substance: CURCUMIN
  52. MAGNESIUM GLUCONATE [Concomitant]
     Active Substance: MAGNESIUM GLUCONATE
  53. MILK THISTLE                       /01131701/ [Concomitant]
  54. SUMATRIPTAN SUCCINATE. [Concomitant]
     Active Substance: SUMATRIPTAN SUCCINATE
  55. KETOCONAZOLE. [Concomitant]
     Active Substance: KETOCONAZOLE
  56. LORATADINE. [Concomitant]
     Active Substance: LORATADINE
  57. ACIDOPHILIS [Concomitant]
     Active Substance: LACTOBACILLUS ACIDOPHILUS
  58. DILTIAZEM. [Concomitant]
     Active Substance: DILTIAZEM
  59. VYVANSE [Concomitant]
     Active Substance: LISDEXAMFETAMINE DIMESYLATE
  60. XYREM [Suspect]
     Active Substance: SODIUM OXYBATE
     Indication: NARCOLEPSY
     Dosage: 2.25 G, BID
     Route: 048
     Dates: start: 201007, end: 201008
  61. ALLERGY                            /00000402/ [Concomitant]
  62. ASCORBIC ACID. [Concomitant]
     Active Substance: ASCORBIC ACID
  63. FLAXSEED [Concomitant]
     Active Substance: FLAX SEED
  64. NADOLOL. [Concomitant]
     Active Substance: NADOLOL
  65. BIOTIN [Concomitant]
     Active Substance: BIOTIN
  66. GUAIFENESIN. [Concomitant]
     Active Substance: GUAIFENESIN
  67. DEXAMETHASONE. [Concomitant]
     Active Substance: DEXAMETHASONE
  68. L LYSINE                           /00919901/ [Concomitant]
  69. PHENYLALANINE [Concomitant]
     Active Substance: PHENYLALANINE

REACTIONS (1)
  - Fatigue [Unknown]
